FAERS Safety Report 21387042 (Version 1)
Quarter: 2022Q3

REPORT INFORMATION
  Report Type: Spontaneous
  Country: JP (occurrence: JP)
  Receive Date: 20220928
  Receipt Date: 20220928
  Transmission Date: 20221026
  Serious: Yes (Hospitalization)
  Sender: FDA-Public Use
  Company Number: JP-MYLANLABS-2022M1096752

PATIENT
  Age: 33 Year
  Sex: Female

DRUGS (8)
  1. CLARITHROMYCIN [Suspect]
     Active Substance: CLARITHROMYCIN
     Indication: Deafness
     Dosage: UNK
     Route: 065
  2. ACETAMINOPHEN [Suspect]
     Active Substance: ACETAMINOPHEN
     Indication: Ear pain
     Dosage: UNK
     Route: 065
  3. METHIMAZOLE [Suspect]
     Active Substance: METHIMAZOLE
     Indication: Basedow^s disease
     Dosage: 30 MILLIGRAM, QD
     Route: 065
  4. PROPYLTHIOURACIL [Suspect]
     Active Substance: PROPYLTHIOURACIL
     Indication: Basedow^s disease
     Dosage: UNK
     Route: 065
  5. OFLOXACIN [Suspect]
     Active Substance: OFLOXACIN
     Indication: Deafness
     Dosage: UNK
     Route: 061
  6. DEXAMETHASONE [Suspect]
     Active Substance: DEXAMETHASONE
     Indication: Deafness
     Dosage: EAR DROPS
     Route: 061
  7. LOXOPROFEN [Suspect]
     Active Substance: LOXOPROFEN
     Indication: Ear pain
     Dosage: UNK
     Route: 065
  8. AMOXICILLIN [Suspect]
     Active Substance: AMOXICILLIN
     Indication: Deafness
     Dosage: UNK
     Route: 065

REACTIONS (1)
  - Drug ineffective [Unknown]
